FAERS Safety Report 15507509 (Version 2)
Quarter: 2018Q4

REPORT INFORMATION
  Report Type: Spontaneous
  Country: JP (occurrence: JP)
  Receive Date: 20181016
  Receipt Date: 20181019
  Transmission Date: 20190205
  Serious: Yes (Other)
  Sender: FDA-Public Use
  Company Number: PHJP2018JP017335

PATIENT
  Age: 62 Year
  Sex: Female

DRUGS (7)
  1. RINDERON V [Concomitant]
     Active Substance: BETAMETHASONE VALERATE
     Indication: PRODUCT USED FOR UNKNOWN INDICATION
     Dosage: 1 GTT, QID
     Route: 047
     Dates: start: 20171205, end: 20171219
  2. NEVANAC [Suspect]
     Active Substance: NEPAFENAC
     Indication: CATARACT OPERATION
     Dosage: 1 GTT, TID
     Route: 047
     Dates: start: 20171205, end: 20171207
  3. VEGAMOX [Concomitant]
     Active Substance: MOXIFLOXACIN HYDROCHLORIDE
     Indication: POSTOPERATIVE CARE
     Dosage: 1 GTT, QID
     Route: 047
     Dates: start: 20171205, end: 20171219
  4. PROCAINE [Concomitant]
     Active Substance: PROCAINE
     Indication: INTRAOPERATIVE CARE
     Dosage: UNK
     Route: 065
  5. CARBOCAINE [Concomitant]
     Active Substance: MEPIVACAINE HYDROCHLORIDE
     Indication: INTRAOPERATIVE CARE
     Dosage: 3 DF, UNK
     Route: 057
  6. PREDONINE [Concomitant]
     Active Substance: PREDNISOLONE
     Indication: RHEUMATOID ARTHRITIS
     Dosage: 5 MG, UNK
     Route: 048
  7. XYLOCAINE [Concomitant]
     Active Substance: LIDOCAINE HYDROCHLORIDE
     Indication: INTRAOPERATIVE CARE
     Dosage: UNK UNK, TID
     Route: 047

REACTIONS (6)
  - Corneal disorder [Recovered/Resolved]
  - Ocular hyperaemia [Unknown]
  - Eye discharge [Unknown]
  - Corneal epithelium defect [Recovered/Resolved]
  - Foreign body sensation in eyes [Unknown]
  - Eye pain [Unknown]

NARRATIVE: CASE EVENT DATE: 20171207
